FAERS Safety Report 4567955-6 (Version None)
Quarter: 2005Q1

REPORT INFORMATION
  Report Type: 
  Country: None (occurrence: None)
  Receive Date: 20050202
  Receipt Date: 20050128
  Transmission Date: 20050727
  Serious: Yes (Death)
  Sender: FDA-Public Use
  Company Number: IT-ABBOTT-05P-083-0288807-01

PATIENT
  Sex: Male

DRUGS (6)
  1. RITONAVIR SOFT GELATIN CAPSULES [Suspect]
     Indication: HIV INFECTION
     Route: 048
     Dates: start: 20030715, end: 20030717
  2. TIPRANAVIR [Concomitant]
     Indication: HIV INFECTION
     Route: 048
     Dates: start: 20030715, end: 20030717
  3. SAQUINAVIR [Concomitant]
     Indication: HIV INFECTION
     Dates: start: 20021215, end: 20030705
  4. ATAZANAVIR [Concomitant]
     Indication: HIV INFECTION
     Dates: start: 20021216, end: 20030705
  5. TENOFOVIR [Concomitant]
     Indication: HIV INFECTION
     Dates: start: 20030603, end: 20030705
  6. LAMIVUDINE [Concomitant]
     Indication: HIV INFECTION
     Dates: start: 20020404, end: 20030705

REACTIONS (1)
  - DEATH [None]
